FAERS Safety Report 8850993 (Version 1)
Quarter: 2012Q4

REPORT INFORMATION
  Report Type: 
  Country: US (occurrence: US)
  Receive Date: 20121019
  Receipt Date: 20121019
  Transmission Date: 20130627
  Serious: Yes (Other)
  Sender: FDA-Public Use
  Company Number: US-PFIZER INC-2012255127

PATIENT
  Age: 34 Year
  Sex: Female
  Weight: 132 kg

DRUGS (1)
  1. PREMARIN [Suspect]
     Indication: HOT FLUSH
     Dosage: 1.25 mg, 1x/day
     Route: 048
     Dates: start: 201209, end: 20121011

REACTIONS (1)
  - Vaginal haemorrhage [Not Recovered/Not Resolved]
